FAERS Safety Report 17050752 (Version 1)
Quarter: 2019Q4

REPORT INFORMATION
  Report Type: Report from Study
  Country: None (occurrence: US)
  Receive Date: 20191119
  Receipt Date: 20191119
  Transmission Date: 20200122
  Serious: Yes (Other)
  Sender: FDA-Public Use
  Company Number: US-ABBVIE-19K-163-2999141-00

PATIENT
  Sex: Female

DRUGS (2)
  1. IGG [Concomitant]
     Active Substance: HUMAN IMMUNOGLOBULIN G
     Indication: PRODUCT USED FOR UNKNOWN INDICATION
  2. VENCLEXTA [Suspect]
     Active Substance: VENETOCLAX
     Indication: CHRONIC LYMPHOCYTIC LEUKAEMIA
     Route: 048
     Dates: start: 20181105

REACTIONS (7)
  - Blood test abnormal [Not Recovered/Not Resolved]
  - Platelet count decreased [Unknown]
  - Respiratory tract congestion [Not Recovered/Not Resolved]
  - Neutrophil count increased [Unknown]
  - Lymphocyte count decreased [Unknown]
  - Increased upper airway secretion [Not Recovered/Not Resolved]
  - Cough [Not Recovered/Not Resolved]

NARRATIVE: CASE EVENT DATE: 2019
